FAERS Safety Report 19065512 (Version 4)
Quarter: 2024Q2

REPORT INFORMATION
  Report Type: Report from Study
  Country: CA (occurrence: CA)
  Receive Date: 20210327
  Receipt Date: 20240620
  Transmission Date: 20240716
  Serious: Yes (Other)
  Sender: FDA-Public Use
  Company Number: PHHY2018CA141095

PATIENT
  Age: 56 Year
  Sex: Male

DRUGS (5)
  1. COSENTYX [Suspect]
     Active Substance: SECUKINUMAB
     Indication: Ankylosing spondylitis
     Dosage: 150 MG, QMO
     Route: 058
     Dates: start: 20180704
  2. INDOMETHACIN [Concomitant]
     Active Substance: INDOMETHACIN
     Indication: Product used for unknown indication
     Dosage: UNK
     Route: 065
  3. CELEBREX [Concomitant]
     Active Substance: CELECOXIB
     Indication: Product used for unknown indication
     Dosage: UNK
     Route: 065
  4. TORADOL [Concomitant]
     Active Substance: KETOROLAC TROMETHAMINE
     Indication: Product used for unknown indication
     Dosage: UNK
     Route: 065
  5. METHOTREXATE [Concomitant]
     Active Substance: METHOTREXATE
     Indication: Product used for unknown indication
     Dosage: UNK
     Route: 065

REACTIONS (22)
  - Femur fracture [Unknown]
  - Accident [Unknown]
  - Tendon rupture [Unknown]
  - Tibia fracture [Unknown]
  - Carpal tunnel syndrome [Unknown]
  - Arthralgia [Unknown]
  - Discomfort [Unknown]
  - Fatigue [Unknown]
  - Mobility decreased [Unknown]
  - Abdominal pain upper [Unknown]
  - Abdominal discomfort [Unknown]
  - Musculoskeletal stiffness [Unknown]
  - Neck pain [Unknown]
  - Hypoaesthesia [Unknown]
  - Gait disturbance [Unknown]
  - Peripheral swelling [Unknown]
  - Tenderness [Unknown]
  - Joint swelling [Unknown]
  - Back pain [Unknown]
  - Pain in extremity [Unknown]
  - Diarrhoea [Unknown]
  - Therapeutic response shortened [Unknown]

NARRATIVE: CASE EVENT DATE: 20200601
